FAERS Safety Report 17007408 (Version 1)
Quarter: 2019Q4

REPORT INFORMATION
  Report Type: Spontaneous
  Country: CN (occurrence: CN)
  Receive Date: 20191108
  Receipt Date: 20191108
  Transmission Date: 20200122
  Serious: Yes (Other)
  Sender: FDA-Public Use
  Company Number: CN-DRREDDYS-GPV/CHN/19/0115706

PATIENT
  Age: 76 Year
  Sex: Male
  Weight: 56 kg

DRUGS (1)
  1. OLANZ [Suspect]
     Active Substance: OLANZAPINE
     Indication: TRANSIENT PSYCHOSIS
     Route: 048
     Dates: start: 20190911, end: 20191030

REACTIONS (1)
  - Pyramidal tract syndrome [Not Recovered/Not Resolved]

NARRATIVE: CASE EVENT DATE: 20190911
